FAERS Safety Report 16082768 (Version 1)
Quarter: 2019Q1

REPORT INFORMATION
  Report Type: Report from Study
  Country: DK (occurrence: DK)
  Receive Date: 20190318
  Receipt Date: 20190318
  Transmission Date: 20190418
  Serious: Yes (Death, Hospitalization, Other)
  Sender: FDA-Public Use
  Company Number: DK-ROCHE-2280008

PATIENT
  Sex: Female

DRUGS (2)
  1. TRASTUZUMAB. [Suspect]
     Active Substance: TRASTUZUMAB
     Indication: BREAST CANCER METASTATIC
     Route: 065
  2. ERIBULIN [Suspect]
     Active Substance: ERIBULIN
     Indication: BREAST CANCER METASTATIC
     Dosage: ON DAYS 1 AND 8
     Route: 042

REACTIONS (21)
  - Sepsis [Fatal]
  - Thrombocytopenia [Unknown]
  - Mucosal inflammation [Unknown]
  - Febrile neutropenia [Unknown]
  - Headache [Unknown]
  - Pleural effusion [Unknown]
  - Anaemia [Unknown]
  - Decreased appetite [Unknown]
  - Oedema [Unknown]
  - Diarrhoea [Unknown]
  - Neuropathy peripheral [Unknown]
  - Infection [Fatal]
  - Multiple organ dysfunction syndrome [Fatal]
  - Arthralgia [Unknown]
  - Vomiting [Unknown]
  - Myalgia [Unknown]
  - Nausea [Unknown]
  - Pyrexia [Unknown]
  - Neutropenia [Fatal]
  - Cardiac failure [Fatal]
  - Fatigue [Unknown]
